FAERS Safety Report 7907518-5 (Version None)
Quarter: 2011Q4

REPORT INFORMATION
  Report Type: 
  Country: None (occurrence: None)
  Receive Date: 20111109
  Receipt Date: 20111031
  Transmission Date: 20120403
  Serious: Yes (Death, Hospitalization, Other)
  Sender: FDA-Public Use
  Company Number: 2011MA004592

PATIENT
  Age: 79 Year
  Sex: Male

DRUGS (2)
  1. OPTIRAY 160 [Suspect]
     Indication: COMPUTERISED TOMOGRAM
     Dates: start: 20100804
  2. RAMIPRIL [Suspect]

REACTIONS (7)
  - DEHYDRATION [None]
  - DIALYSIS [None]
  - PLEURAL DISORDER [None]
  - RENAL FAILURE [None]
  - PSYCHOLOGICAL TRAUMA [None]
  - URINARY RETENTION [None]
  - EMOTIONAL DISTRESS [None]
